FAERS Safety Report 8085433-7 (Version None)
Quarter: 2012Q1

REPORT INFORMATION
  Report Type: 
  Country: None (occurrence: None)
  Receive Date: 20120128
  Receipt Date: 20110501
  Transmission Date: 20120608
  Serious: No
  Sender: FDA-Public Use
  Company Number: US-ABBOTT-11P-163-0706050-00

PATIENT
  Age: 33 Year
  Sex: Male

DRUGS (3)
  1. HUMIRA [Suspect]
     Indication: PSORIASIS
     Dates: start: 20101018, end: 20110301
  2. HUMIRA [Suspect]
  3. METFFORMIN HYDROCHLORIDE [Concomitant]
     Indication: PRODUCT USED FOR UNKNOWN INDICATION

REACTIONS (7)
  - SINUSITIS [None]
  - OROPHARYNGEAL PAIN [None]
  - COUGH [None]
  - ASTHENIA [None]
  - UPPER RESPIRATORY TRACT INFECTION [None]
  - NASAL CONGESTION [None]
  - PYREXIA [None]
